FAERS Safety Report 25524044 (Version 1)
Quarter: 2025Q3

REPORT INFORMATION
  Report Type: Spontaneous
  Country: US (occurrence: US)
  Receive Date: 20250707
  Receipt Date: 20250707
  Transmission Date: 20251021
  Serious: No
  Sender: CSL BEHRING
  Company Number: US-BEH-2025210484

PATIENT
  Age: 30 Year
  Sex: Male

DRUGS (3)
  1. HUMAN IMMUNOGLOBULIN G [Suspect]
     Active Substance: HUMAN IMMUNOGLOBULIN G
     Indication: Postural orthostatic tachycardia syndrome
     Route: 065
  2. HUMAN IMMUNOGLOBULIN G [Suspect]
     Active Substance: HUMAN IMMUNOGLOBULIN G
     Indication: COVID-19
  3. SALINE [Concomitant]
     Active Substance: SODIUM CHLORIDE

REACTIONS (2)
  - Bedridden [Unknown]
  - Off label use [Unknown]
